FAERS Safety Report 8110785-9 (Version None)
Quarter: 2012Q1

REPORT INFORMATION
  Report Type: 
  Country: None (occurrence: None)
  Receive Date: 20120203
  Receipt Date: 20111031
  Transmission Date: 20120608
  Serious: No
  Sender: FDA-Public Use
  Company Number: US-COVIDIEN/TYCO HEALTHCARE/MALLINCKRODT-T201103012

PATIENT
  Sex: Male

DRUGS (1)
  1. PROPOXYPHENE HCL AND ACETAMINOPHEN [Suspect]
     Indication: PAIN MANAGEMENT

REACTIONS (12)
  - DRY MOUTH [None]
  - HEART RATE DECREASED [None]
  - DYSPNOEA [None]
  - NAUSEA [None]
  - HYPOPNOEA [None]
  - PRURITUS [None]
  - DIZZINESS [None]
  - CHEST PAIN [None]
  - SOMNOLENCE [None]
  - ABDOMINAL PAIN UPPER [None]
  - DECREASED APPETITE [None]
  - HEADACHE [None]
